FAERS Safety Report 15226995 (Version 1)
Quarter: 2018Q3

REPORT INFORMATION
  Report Type: Spontaneous
  Country: FR (occurrence: FR)
  Receive Date: 20180801
  Receipt Date: 20180801
  Transmission Date: 20181010
  Serious: Yes (Other)
  Sender: FDA-Public Use
  Company Number: FR-PFIZER INC-2018308474

PATIENT
  Age: 66 Year
  Sex: Female

DRUGS (2)
  1. IBUPROFEN. [Suspect]
     Active Substance: IBUPROFEN
     Dosage: 600 MG, DAILY
  2. EFEDRINE HCL [Concomitant]
     Dosage: UNK

REACTIONS (4)
  - Hepatotoxicity [Unknown]
  - Hepatitis acute [Unknown]
  - Hepatic necrosis [Unknown]
  - Hepatocellular injury [Unknown]
